FAERS Safety Report 6369564-5 (Version None)
Quarter: 2009Q3

REPORT INFORMATION
  Report Type: 
  Country: None (occurrence: None)
  Receive Date: 20090923
  Receipt Date: 20090915
  Transmission Date: 20100115
  Serious: Yes (Other)
  Sender: FDA-Public Use
  Company Number: JP-JNJFOC-20090905218

PATIENT
  Age: 68 Year
  Sex: Male

DRUGS (6)
  1. ITRIZOLE [Suspect]
     Route: 041
     Dates: start: 20081024, end: 20081106
  2. ITRIZOLE [Suspect]
     Indication: ANTIFUNGAL PROPHYLAXIS
     Route: 041
     Dates: start: 20081024, end: 20081106
  3. MAXIPIME [Concomitant]
     Indication: DRUG USE FOR UNKNOWN INDICATION
     Route: 042
     Dates: start: 20081018, end: 20081023
  4. CARBENIN [Concomitant]
     Indication: DRUG USE FOR UNKNOWN INDICATION
     Route: 042
     Dates: start: 20081024, end: 20081106
  5. ACYCLOVIR [Concomitant]
     Indication: DRUG USE FOR UNKNOWN INDICATION
     Route: 042
     Dates: start: 20081024, end: 20081102
  6. PREDONINE [Concomitant]
     Indication: DRUG USE FOR UNKNOWN INDICATION
     Route: 042
     Dates: start: 20081102, end: 20081114

REACTIONS (3)
  - DYSPNOEA [None]
  - HYPOXIA [None]
  - LUNG INFILTRATION [None]
